FAERS Safety Report 6566048-6 (Version None)
Quarter: 2010Q1

REPORT INFORMATION
  Report Type: 
  Country: None (occurrence: None)
  Receive Date: 20100202
  Receipt Date: 20100126
  Transmission Date: 20100710
  Serious: Yes (Hospitalization)
  Sender: FDA-Public Use
  Company Number: US-BIOGENIDEC-2005BI020218

PATIENT
  Age: 62 Year
  Sex: Female
  Weight: 51 kg

DRUGS (3)
  1. AVONEX [Suspect]
     Indication: MULTIPLE SCLEROSIS
     Route: 030
     Dates: start: 20020918
  2. AVONEX [Suspect]
     Route: 030
  3. AVONEX [Suspect]
     Route: 030

REACTIONS (13)
  - APPENDICECTOMY [None]
  - COLON CANCER [None]
  - CONTRAST MEDIA ALLERGY [None]
  - DEVICE RELATED INFECTION [None]
  - FATIGUE [None]
  - HERNIA [None]
  - HERNIA REPAIR [None]
  - INFLUENZA LIKE ILLNESS [None]
  - LYMPHADENECTOMY [None]
  - MULTIPLE SCLEROSIS RELAPSE [None]
  - OOPHORECTOMY BILATERAL [None]
  - PAIN [None]
  - SUTURE RELATED COMPLICATION [None]
